FAERS Safety Report 9003040 (Version 2)
Quarter: 2013Q1

REPORT INFORMATION
  Report Type: Report from Study
  Country: US (occurrence: US)
  Receive Date: 20130108
  Receipt Date: 20130110
  Transmission Date: 20140127
  Serious: Yes (Death)
  Sender: FDA-Public Use
  Company Number: US-ROCHE-1177452

PATIENT
  Sex: Female

DRUGS (2)
  1. BEVACIZUMAB [Suspect]
     Indication: COLON CANCER METASTATIC
     Route: 042
     Dates: start: 20120911
  2. VECTIBIX [Concomitant]
     Indication: COLON CANCER METASTATIC
     Route: 042
     Dates: start: 20121204, end: 20121204

REACTIONS (1)
  - Disease progression [Fatal]
